FAERS Safety Report 10489131 (Version 1)
Quarter: 2014Q4

REPORT INFORMATION
  Report Type: Spontaneous
  Country: US (occurrence: US)
  Receive Date: 20141002
  Receipt Date: 20141002
  Transmission Date: 20150528
  Serious: No
  Sender: FDA-Public Use
  Company Number: US-BAYER-2014-146279

PATIENT
  Age: 37 Year
  Sex: Female

DRUGS (1)
  1. GADAVIST [Suspect]
     Active Substance: GADOBUTROL
     Dosage: 10ML VIAL, UNK

REACTIONS (4)
  - Throat irritation [None]
  - Hot flush [None]
  - Sneezing [None]
  - Dysphagia [None]

NARRATIVE: CASE EVENT DATE: 20140929
